FAERS Safety Report 23083644 (Version 1)
Quarter: 2023Q4

REPORT INFORMATION
  Report Type: Spontaneous
  Country: GB (occurrence: GB)
  Receive Date: 20231019
  Receipt Date: 20231019
  Transmission Date: 20240110
  Serious: Yes (Other)
  Sender: FDA-Public Use
  Company Number: None

PATIENT
  Age: 48 Year
  Sex: Female
  Weight: 64 kg

DRUGS (7)
  1. SERTRALINE [Suspect]
     Active Substance: SERTRALINE HYDROCHLORIDE
     Indication: Depression
     Dosage: 100 MILLIGRAM, QD (100MG AT MORNING)
     Route: 065
  2. ESTRADIOL [Concomitant]
     Active Substance: ESTRADIOL
     Indication: Hormone replacement therapy
     Dosage: UNK
     Route: 065
  3. ESTRIOL [Concomitant]
     Active Substance: ESTRIOL
     Indication: Hormone replacement therapy
     Dosage: UNK
     Route: 065
  4. PRASTERONE [Concomitant]
     Active Substance: PRASTERONE
     Indication: Hormone replacement therapy
     Dosage: UNK
     Route: 065
  5. TESTOSTERONE [Concomitant]
     Active Substance: TESTOSTERONE
     Indication: Hormone replacement therapy
     Dosage: UNK
     Route: 065
  6. UTROGESTAN [Concomitant]
     Active Substance: PROGESTERONE
     Indication: Hormone replacement therapy
     Dosage: UNK
     Route: 065
  7. DEPO-PROVERA [Concomitant]
     Active Substance: MEDROXYPROGESTERONE ACETATE
     Indication: Endometriosis
     Dosage: UNK
     Route: 065

REACTIONS (1)
  - Flatulence [Not Recovered/Not Resolved]
